FAERS Safety Report 10723622 (Version 2)
Quarter: 2015Q1

REPORT INFORMATION
  Report Type: Spontaneous
  Country: IT (occurrence: None)
  Receive Date: 20150115
  Receipt Date: 20150224
  Transmission Date: 20150721
  Serious: Yes (Other)
  Sender: FDA-Public Use
  Company Number: 2014MPI01777

PATIENT
  Age: 43 Year
  Sex: Male

DRUGS (1)
  1. ADCETRIS [Suspect]
     Active Substance: BRENTUXIMAB VEDOTIN
     Indication: HODGKIN^S DISEASE
     Dosage: 126 MG, CYCLICAL, INTRAVENOUS
     Route: 042
     Dates: start: 20141029, end: 20141210

REACTIONS (2)
  - Chills [None]
  - Hypotension [None]

NARRATIVE: CASE EVENT DATE: 20141210
